FAERS Safety Report 9009188 (Version 2)
Quarter: 2013Q1

REPORT INFORMATION
  Report Type: Report from Study
  Country: FR (occurrence: FR)
  Receive Date: 20130111
  Receipt Date: 20130202
  Transmission Date: 20140127
  Serious: Yes (Hospitalization, Other)
  Sender: FDA-Public Use
  Company Number: FR-ALLERGAN-1300133US

PATIENT
  Age: 76 Year
  Sex: Male

DRUGS (3)
  1. DEX [Suspect]
     Indication: RETINAL VEIN OCCLUSION
     Dosage: 0.7 MG, SINGLE
     Route: 065
     Dates: start: 20111221, end: 20111221
  2. DEX [Suspect]
     Dosage: 0.7 MG, SINGLE
     Route: 031
     Dates: start: 20110323, end: 20110323
  3. DEX [Suspect]
     Dosage: 0.7 MG, SINGLE
     Route: 031
     Dates: start: 20110713, end: 20110713

REACTIONS (1)
  - Cataract [Recovered/Resolved]
